FAERS Safety Report 15171423 (Version 1)
Quarter: 2018Q3

REPORT INFORMATION
  Report Type: Spontaneous
  Country: FR (occurrence: FR)
  Receive Date: 20180720
  Receipt Date: 20180720
  Transmission Date: 20181010
  Serious: Yes (Death)
  Sender: FDA-Public Use
  Company Number: FR-MYLANLABS-2018M1052527

PATIENT

DRUGS (4)
  1. THIOTEPA. [Suspect]
     Active Substance: THIOTEPA
     Indication: BONE MARROW CONDITIONING REGIMEN
     Dosage: 8 MG/KG, UNK, (8 MG/KG ON DAY 6)
     Route: 065
  2. ETOPOSIDE. [Suspect]
     Active Substance: ETOPOSIDE
     Indication: BONE MARROW CONDITIONING REGIMEN
     Dosage: 100 MG/M2, BID, (100 MG/M2, Q12H)
     Route: 065
  3. MELPHALAN. [Suspect]
     Active Substance: MELPHALAN
     Indication: BONE MARROW CONDITIONING REGIMEN
     Dosage: 200 MG/M2, UNK, (200 MG/M2 ON DAY 1)
     Route: 065
  4. CYTARABINE. [Suspect]
     Active Substance: CYTARABINE
     Indication: BONE MARROW CONDITIONING REGIMEN
     Dosage: 200 MG/M2, BID (200 MG/M2, Q12H, DAY 5 TO 12)
     Route: 065

REACTIONS (1)
  - Angioimmunoblastic T-cell lymphoma refractory [Fatal]
